FAERS Safety Report 5488003-X (Version None)
Quarter: 2007Q4

REPORT INFORMATION
  Report Type: 
  Country: None (occurrence: None)
  Receive Date: 20071012
  Receipt Date: 20071012
  Transmission Date: 20080405
  Serious: Yes (Hospitalization)
  Sender: FDA-Public Use
  Company Number: None

PATIENT
  Age: 6 Day
  Sex: Male
  Weight: 0.98 kg

DRUGS (15)
  1. INDOMETHACIN [Suspect]
     Indication: PROPHYLAXIS
     Dosage: 0.1MG Q24H X 3 DOSES IV
     Route: 042
     Dates: start: 20071004, end: 20071006
  2. INDOMETHACIN [Suspect]
     Indication: PATENT DUCTUS ARTERIOSUS
     Dosage: 0.2MG Q12H X 3 DOSES IV
     Route: 042
     Dates: start: 20071008, end: 20071009
  3. AMPICILLIN [Concomitant]
  4. GENTAMICIN [Concomitant]
  5. CAFFEINE CITRATE [Concomitant]
  6. SWEET EASE [Concomitant]
  7. PHYTONADIONE [Concomitant]
  8. LIDOCAINE/PRILOCAINE [Concomitant]
  9. BERACTANT [Concomitant]
  10. FENTANYL-100 [Concomitant]
  11. GLYCERIN [Concomitant]
  12. HEPATITIS B VACCINE [Concomitant]
  13. D10W + HEPARIN [Concomitant]
  14. NACL +  HEPARIN [Concomitant]
  15. TPN SUSPENSION [Concomitant]

REACTIONS (2)
  - GENERAL PHYSICAL HEALTH DETERIORATION [None]
  - INTESTINAL PERFORATION [None]
